FAERS Safety Report 8810374 (Version 2)
Quarter: 2012Q4

REPORT INFORMATION
  Report Type: 
  Country: US (occurrence: US)
  Receive Date: 20120926
  Receipt Date: 20121010
  Transmission Date: 20130627
  Serious: No
  Sender: FDA-Public Use
  Company Number: US-009507513-1208USA007247

PATIENT
  Sex: Female
  Weight: 114.29 kg

DRUGS (2)
  1. PEG-INTRON [Suspect]
     Indication: HEPATITIS C
     Dosage: Redipen
     Dates: start: 20120803
  2. REBETOL [Suspect]
     Indication: HEPATITIS C
     Dosage: UNK
     Dates: start: 20120803

REACTIONS (27)
  - Feeling hot [Unknown]
  - Vessel puncture site bruise [Unknown]
  - Menorrhagia [Unknown]
  - Feeling cold [Unknown]
  - Throat irritation [Unknown]
  - Back pain [Unknown]
  - Nasal congestion [Unknown]
  - Rhinorrhoea [Unknown]
  - Pain [Unknown]
  - Pain [Unknown]
  - Tremor [Unknown]
  - Weight decreased [Unknown]
  - Tremor [Unknown]
  - Muscle spasms [Unknown]
  - Dry mouth [Unknown]
  - Injection site rash [Unknown]
  - Weight decreased [Unknown]
  - Malaise [Unknown]
  - Malaise [Unknown]
  - Dizziness [Unknown]
  - Influenza like illness [Unknown]
  - Dizziness [Unknown]
  - Decreased appetite [Unknown]
  - Nausea [Unknown]
  - Asthenia [Unknown]
  - Influenza like illness [Unknown]
  - Decreased appetite [Unknown]
